FAERS Safety Report 5148079-6 (Version None)
Quarter: 2006Q4

REPORT INFORMATION
  Report Type: 
  Country: None (occurrence: None)
  Receive Date: 20061106
  Receipt Date: 20061025
  Transmission Date: 20070319
  Serious: Yes (Other)
  Sender: FDA-Public Use
  Company Number: 2006102321

PATIENT
  Age: 48 Year
  Sex: Female

DRUGS (3)
  1. NEURONTIN [Suspect]
     Indication: NEURALGIA
     Dosage: 1800 MG (600 MG, 3 IN 1 D), ORAL
     Route: 048
     Dates: start: 20060701
  2. HYDROMORPHONE HCL [Concomitant]
  3. ENDEP [Concomitant]

REACTIONS (2)
  - NIGHT BLINDNESS [None]
  - VISUAL FIELD DEFECT [None]
